FAERS Safety Report 22323776 (Version 1)
Quarter: 2023Q2

REPORT INFORMATION
  Report Type: Spontaneous
  Country: US (occurrence: US)
  Receive Date: 20230516
  Receipt Date: 20230516
  Transmission Date: 20230722
  Serious: Yes (Life-Threatening, Hospitalization)
  Sender: FDA-Public Use
  Company Number: US-TEVA-2023-US-2886634

PATIENT
  Age: 44 Year
  Sex: Male

DRUGS (2)
  1. DEXAMETHASONE [Suspect]
     Active Substance: DEXAMETHASONE
     Indication: COVID-19 pneumonia
     Route: 065
     Dates: start: 2021
  2. MOLNUPIRAVIR [Suspect]
     Active Substance: MOLNUPIRAVIR
     Indication: COVID-19 pneumonia
     Route: 065
     Dates: start: 202107

REACTIONS (8)
  - Mucormycosis [Recovering/Resolving]
  - Mucormycosis [Recovering/Resolving]
  - Haemoptysis [Recovered/Resolved]
  - Arterial injury [Recovered/Resolved]
  - Vascular pseudoaneurysm [Recovered/Resolved]
  - Pulmonary haemorrhage [Recovered/Resolved]
  - Drug ineffective [Unknown]
  - Off label use [Unknown]

NARRATIVE: CASE EVENT DATE: 20210101
